FAERS Safety Report 8495981-3 (Version None)
Quarter: 2012Q3

REPORT INFORMATION
  Report Type: 
  Country: None (occurrence: None)
  Receive Date: 20120709
  Receipt Date: 20120702
  Transmission Date: 20120928
  Serious: Yes (Other)
  Sender: FDA-Public Use
  Company Number: JP-GLAXOSMITHKLINE-B0812943A

PATIENT
  Age: 71 Year
  Sex: Male

DRUGS (1)
  1. FLUTICASONE PROPIONATE [Suspect]
     Indication: ASTHMA
     Dosage: 200MCG PER DAY
     Route: 055

REACTIONS (5)
  - ASTHMA [None]
  - SPUTUM RETENTION [None]
  - DYSGEUSIA [None]
  - PRODUCT QUALITY ISSUE [None]
  - COUGH [None]
